FAERS Safety Report 9014092 (Version 2)
Quarter: 2013Q1

REPORT INFORMATION
  Report Type: Spontaneous
  Country: US (occurrence: US)
  Receive Date: 20130115
  Receipt Date: 20130206
  Transmission Date: 20140127
  Serious: Yes (Hospitalization)
  Sender: FDA-Public Use
  Company Number: US-JNJFOC-20130103905

PATIENT
  Age: 12 Year
  Sex: Male
  Weight: 90.72 kg

DRUGS (2)
  1. CHILDRENS SUDAFED NASAL DECONGESTANT [Suspect]
     Indication: NASAL DECONGESTION THERAPY
     Dosage: 2 TABLESPOONS, 2 TIMES ON 04-JAN-2013 AT 07:00 PM AND 05-JAN-2013 AT 07:00 AM
     Route: 048
     Dates: start: 20130104, end: 20130105
  2. CHILDRENS SUDAFED NASAL DECONGESTANT [Suspect]
     Indication: NASOPHARYNGITIS
     Dosage: 2 TABLESPOONS, 2 TIMES ON 04-JAN-2013 AT 07:00 PM AND 05-JAN-2013 AT 07:00 AM
     Route: 048
     Dates: start: 20130104, end: 20130105

REACTIONS (1)
  - Convulsion [Recovered/Resolved]
